FAERS Safety Report 8401185-2 (Version None)
Quarter: 2012Q2

REPORT INFORMATION
  Report Type: 
  Country: None (occurrence: None)
  Receive Date: 20120601
  Receipt Date: 20120521
  Transmission Date: 20120825
  Serious: Yes (Death, Hospitalization)
  Sender: FDA-Public Use
  Company Number: US-RANBAXY-2012US-56698

PATIENT
  Age: 54 Year
  Sex: Female

DRUGS (4)
  1. PIPERACILLIN AND TAZOBACTAM [Concomitant]
     Indication: URINARY TRACT INFECTION
     Dosage: UNK
     Route: 065
  2. METFORMIN HCL [Suspect]
     Indication: PRODUCT USED FOR UNKNOWN INDICATION
     Dosage: 1000 MG, BID
     Route: 065
  3. LISINOPRIL [Suspect]
     Indication: PRODUCT USED FOR UNKNOWN INDICATION
     Dosage: 5 MG DAILY
     Route: 065
  4. SODIUM BICARBONATE [Concomitant]
     Indication: URINARY TRACT INFECTION
     Dosage: UNK
     Route: 065

REACTIONS (3)
  - HYPOTHERMIA [None]
  - RENAL FAILURE ACUTE [None]
  - LACTIC ACIDOSIS [None]
